FAERS Safety Report 5924244-2 (Version None)
Quarter: 2008Q4

REPORT INFORMATION
  Report Type: 
  Country: None (occurrence: None)
  Receive Date: 20081020
  Receipt Date: 20081008
  Transmission Date: 20090506
  Serious: Yes (Hospitalization, Other)
  Sender: FDA-Public Use
  Company Number: BR-PFIZER INC-2008081115

PATIENT
  Sex: Female

DRUGS (2)
  1. FRONTAL [Suspect]
     Route: 048
  2. SERTRALINE [Interacting]
     Route: 048

REACTIONS (2)
  - DRUG INTERACTION [None]
  - INTENTIONAL DRUG MISUSE [None]
